FAERS Safety Report 23037844 (Version 4)
Quarter: 2024Q1

REPORT INFORMATION
  Report Type: Report from Study
  Country: CA (occurrence: CA)
  Receive Date: 20231006
  Receipt Date: 20240221
  Transmission Date: 20240410
  Serious: Yes (Hospitalization, Other)
  Sender: FDA-Public Use
  Company Number: CA-MYLANLABS-2022M1088847

PATIENT

DRUGS (1)
  1. HULIO [Suspect]
     Active Substance: ADALIMUMAB-FKJP
     Indication: Crohn^s disease
     Dosage: 40 MILLIGRAM, QW ( 40 MG SCQ WEEKLY)
     Route: 058
     Dates: start: 20211015

REACTIONS (10)
  - Hospitalisation [Unknown]
  - Loss of consciousness [Unknown]
  - Fall [Unknown]
  - Abdominal pain [Unknown]
  - Diarrhoea [Unknown]
  - Vision blurred [Unknown]
  - Skin ulcer [Unknown]
  - Drug ineffective [Unknown]
  - Off label use [Unknown]
  - Product dose omission issue [Unknown]
